FAERS Safety Report 8196684-5 (Version None)
Quarter: 2012Q1

REPORT INFORMATION
  Report Type: 
  Country: None (occurrence: None)
  Receive Date: 20120309
  Receipt Date: 20120301
  Transmission Date: 20120608
  Serious: Yes (Hospitalization)
  Sender: FDA-Public Use
  Company Number: US-BAYER-2011-049497

PATIENT
  Age: 43 Year
  Sex: Female
  Weight: 70.295 kg

DRUGS (5)
  1. YAZ [Suspect]
  2. YAZ [Suspect]
     Indication: PREMENSTRUAL SYNDROME
  3. METAMUCIL-2 [Concomitant]
     Dosage: 0.52 GM CAPS
     Dates: start: 20090716
  4. YAZ [Suspect]
     Indication: CONTRACEPTION
     Dosage: UNK
     Dates: start: 20071113, end: 20090717
  5. ASPIRIN [Concomitant]

REACTIONS (8)
  - EMOTIONAL DISTRESS [None]
  - PAIN [None]
  - DYSPNOEA [None]
  - GENERAL PHYSICAL HEALTH DETERIORATION [None]
  - FEAR [None]
  - CHEST PAIN [None]
  - PULMONARY EMBOLISM [None]
  - ANXIETY [None]
